FAERS Safety Report 5522967-0 (Version None)
Quarter: 2007Q4

REPORT INFORMATION
  Report Type: 
  Country: None (occurrence: None)
  Receive Date: 20071121
  Receipt Date: 20071112
  Transmission Date: 20080405
  Serious: Yes (Other)
  Sender: FDA-Public Use
  Company Number: PHNU2007DE03788

PATIENT
  Sex: Male

DRUGS (3)
  1. ERGENYL CHRONO [Suspect]
     Indication: EPILEPSY
     Dates: start: 20040101, end: 20071001
  2. KEPPRA [Concomitant]
     Indication: EPILEPSY
     Dates: start: 20071001
  3. TRILEPTAL [Suspect]
     Indication: EPILEPSY
     Dosage: 300 MG, BID
     Dates: start: 20061101

REACTIONS (1)
  - NUCLEAR MAGNETIC RESONANCE IMAGING BRAIN ABNORMAL [None]
